FAERS Safety Report 4703934-3 (Version None)
Quarter: 2005Q2

REPORT INFORMATION
  Report Type: 
  Country: None (occurrence: None)
  Receive Date: 20050630
  Receipt Date: 20050531
  Transmission Date: 20051028
  Serious: Yes (Other)
  Sender: FDA-Public Use
  Company Number: US-MERCK-0506USA00134

PATIENT
  Age: 63 Year
  Sex: Female
  Weight: 72 kg

DRUGS (2)
  1. FOSAMAX [Suspect]
     Indication: OSTEOPOROSIS
     Route: 048
     Dates: start: 20030801, end: 20050501
  2. PREDNISONE [Concomitant]
     Indication: POLYMYALGIA
     Route: 048
     Dates: start: 20040101

REACTIONS (5)
  - ACCIDENTAL OVERDOSE [None]
  - ARTHROPOD BITE [None]
  - INAPPROPRIATE SCHEDULE OF DRUG ADMINISTRATION [None]
  - RENAL FAILURE [None]
  - RENAL IMPAIRMENT [None]
